FAERS Safety Report 8037510-4 (Version None)
Quarter: 2012Q1

REPORT INFORMATION
  Report Type: 
  Country: None (occurrence: None)
  Receive Date: 20120111
  Receipt Date: 20120104
  Transmission Date: 20120608
  Serious: Yes (Hospitalization)
  Sender: FDA-Public Use
  Company Number: US-ASTRAZENECA-2012SE00884

PATIENT
  Sex: Female

DRUGS (4)
  1. PROAIR HFA [Concomitant]
  2. SINGULAIR [Concomitant]
  3. NEBULIZER [Concomitant]
  4. SYMBICORT [Suspect]
     Route: 055

REACTIONS (2)
  - ASTHMA [None]
  - CHRONIC OBSTRUCTIVE PULMONARY DISEASE [None]
